FAERS Safety Report 10390384 (Version 1)
Quarter: 2014Q3

REPORT INFORMATION
  Report Type: Spontaneous
  Country: US (occurrence: None)
  Receive Date: 20140814
  Receipt Date: 20140814
  Transmission Date: 20150326
  Serious: Yes (Other)
  Sender: FDA-Public Use
  Company Number: HA14-280-AE

PATIENT
  Age: 49 Year
  Sex: Female
  Weight: 81.65 kg

DRUGS (7)
  1. DITROPAN [Concomitant]
     Active Substance: OXYBUTYNIN CHLORIDE
  2. POLYETHYLENE GLUCOL (MIRALAX) [Concomitant]
  3. ESTERIFIED ESTROGENS/METHYLTESTOSTERONE (ESTRATEST DS) [Concomitant]
  4. GABAPENTIN. [Suspect]
     Active Substance: GABAPENTIN
     Indication: FIBROMYALGIA
     Dosage: 3 CAPSULE
     Dates: start: 201402, end: 20140711
  5. LEVOXYL [Concomitant]
     Active Substance: LEVOTHYROXINE SODIUM
  6. TRAMADOL [Concomitant]
     Active Substance: TRAMADOL
  7. LEVOTHYROXINE [Concomitant]
     Active Substance: LEVOTHYROXINE

REACTIONS (8)
  - Tongue disorder [None]
  - Alopecia [None]
  - Throat tightness [None]
  - Dry throat [None]
  - Ear pain [None]
  - Migraine [None]
  - Dry mouth [None]
  - Rhinalgia [None]
